FAERS Safety Report 16103254 (Version 1)
Quarter: 2019Q1

REPORT INFORMATION
  Report Type: Spontaneous
  Country: US (occurrence: US)
  Receive Date: 20190322
  Receipt Date: 20190322
  Transmission Date: 20190418
  Serious: No
  Sender: FDA-Public Use
  Company Number: US-TEVA-2019-US-1018761

PATIENT
  Sex: Female
  Weight: 77.18 kg

DRUGS (2)
  1. GLYBURIDE. [Suspect]
     Active Substance: GLYBURIDE
     Dosage: 10 MILLIGRAM DAILY;
     Route: 048
     Dates: start: 20150909, end: 201704
  2. METFORMIN [Suspect]
     Active Substance: METFORMIN HYDROCHLORIDE
     Dosage: 1000 MILLIGRAM DAILY;
     Route: 048
     Dates: start: 20151110, end: 201704

REACTIONS (1)
  - Renal disorder [Recovering/Resolving]
